FAERS Safety Report 14473231 (Version 3)
Quarter: 2018Q1

REPORT INFORMATION
  Report Type: Spontaneous
  Country: JP (occurrence: JP)
  Receive Date: 20180201
  Receipt Date: 20180307
  Transmission Date: 20180509
  Serious: Yes (Life-Threatening, Hospitalization, Other)
  Sender: FDA-Public Use
  Company Number: JP-CONCORDIA PHARMACEUTICALS INC.-E2B_00009694

PATIENT
  Age: 75 Year
  Sex: Female

DRUGS (6)
  1. ACYCLOVIR. [Concomitant]
     Active Substance: ACYCLOVIR
  2. TRIMETHOPRIM/SULFAMETHOXAZOLE [Concomitant]
     Active Substance: SULFAMETHOXAZOLE\TRIMETHOPRIM
  3. METHOTREXATE. [Suspect]
     Active Substance: METHOTREXATE
     Indication: RHEUMATOID ARTHRITIS
  4. PREDNISOLONE. [Suspect]
     Active Substance: PREDNISOLONE
     Indication: RHEUMATOID ARTHRITIS
  5. METHYL PREDNISOLONE [Concomitant]
     Active Substance: METHYLPREDNISOLONE
     Route: 042
  6. CLINDAMYCIN. [Concomitant]
     Active Substance: CLINDAMYCIN

REACTIONS (5)
  - Epstein-Barr virus infection [Unknown]
  - Drug ineffective [Unknown]
  - Vasculitis cerebral [Unknown]
  - Condition aggravated [Unknown]
  - Viral vasculitis [Unknown]
